FAERS Safety Report 7952335-3 (Version None)
Quarter: 2011Q4

REPORT INFORMATION
  Report Type: 
  Country: None (occurrence: None)
  Receive Date: 20111129
  Receipt Date: 20111114
  Transmission Date: 20120403
  Serious: Yes (Death, Other)
  Sender: FDA-Public Use
  Company Number: EU-2011-10197

PATIENT
  Age: 76 Year
  Sex: Female

DRUGS (4)
  1. ASPIRIN [Concomitant]
  2. ENALAPRIL MALEATE [Concomitant]
  3. CILOSTAZOL [Suspect]
     Indication: INTERMITTENT CLAUDICATION
     Dosage: 200 MG MILLIGRAM(S), DAILY DOSE, ORAL
     Route: 048
     Dates: start: 20110706, end: 20110707
  4. NOVOMIX 30 (INSULIN ASPART, INSULIN ASPART PROTAMINE (CRYSTALLINE)) [Concomitant]

REACTIONS (5)
  - CARDIAC ARREST [None]
  - NAUSEA [None]
  - HYPERHIDROSIS [None]
  - DISCOMFORT [None]
  - DYSPNOEA [None]
